FAERS Safety Report 4735962-6 (Version None)
Quarter: 2005Q3

REPORT INFORMATION
  Report Type: 
  Country: None (occurrence: None)
  Receive Date: 20050805
  Receipt Date: 20031009
  Transmission Date: 20060218
  Serious: Yes (Life-Threatening, Hospitalization, Disabling, Other)
  Sender: FDA-Public Use
  Company Number: US-MERCK-0310USA01303

PATIENT
  Age: 55 Year
  Sex: Female
  Weight: 91 kg

DRUGS (25)
  1. VIOXX [Suspect]
     Indication: ARTHRITIS
     Route: 048
     Dates: start: 20010101, end: 20010829
  2. VIOXX [Suspect]
     Route: 048
     Dates: start: 20000222
  3. VIOXX [Suspect]
     Route: 048
     Dates: start: 20010830, end: 20011227
  4. VIOXX [Suspect]
     Indication: PAIN
     Route: 048
     Dates: start: 20010101, end: 20010829
  5. VIOXX [Suspect]
     Route: 048
     Dates: start: 20000222
  6. VIOXX [Suspect]
     Route: 048
     Dates: start: 20010830, end: 20011227
  7. CARDIZEM CD [Concomitant]
     Route: 065
  8. K-DUR 10 [Concomitant]
     Route: 065
  9. ACCUPRIL [Concomitant]
     Route: 065
     Dates: start: 20010627, end: 20010714
  10. ACCUPRIL [Concomitant]
     Route: 065
     Dates: start: 20010715, end: 20010821
  11. ACCUPRIL [Concomitant]
     Route: 065
     Dates: start: 20010822, end: 20020120
  12. PAXIL [Concomitant]
     Route: 065
     Dates: start: 19950101, end: 20010601
  13. PAXIL [Concomitant]
     Route: 065
     Dates: start: 20010719, end: 20010829
  14. PAXIL [Concomitant]
     Route: 065
     Dates: start: 20020120
  15. PAXIL [Concomitant]
     Route: 065
     Dates: start: 20010829, end: 20020120
  16. LASIX [Concomitant]
     Route: 065
     Dates: start: 19950101
  17. LASIX [Concomitant]
     Route: 065
     Dates: start: 20010829
  18. LASIX [Concomitant]
     Route: 065
     Dates: start: 20020120
  19. SOMA [Concomitant]
     Route: 065
  20. ALEVE [Concomitant]
     Route: 065
  21. NITROGLYCERIN [Concomitant]
     Route: 065
  22. ASPIRIN [Concomitant]
     Route: 065
     Dates: start: 19950101
  23. PERCOCET [Concomitant]
     Route: 065
  24. FERROUS SULFATE [Concomitant]
     Route: 065
  25. EXTRA STRENGTH TYLENOL [Concomitant]
     Route: 065

REACTIONS (57)
  - ANAEMIA [None]
  - ANGINA PECTORIS [None]
  - ANXIETY [None]
  - ARTHRALGIA [None]
  - ARTHRITIS [None]
  - BEREAVEMENT REACTION [None]
  - BLOOD GLUCOSE INCREASED [None]
  - BLOOD PRESSURE ABNORMAL [None]
  - BONE PAIN [None]
  - CARDIAC MURMUR [None]
  - CARDIAC VALVE DISEASE [None]
  - CARDIOMEGALY [None]
  - CHEST PAIN [None]
  - CHEST WALL PAIN [None]
  - CHRONIC OBSTRUCTIVE PULMONARY DISEASE [None]
  - CORONARY ARTERY ATHEROSCLEROSIS [None]
  - CORONARY ARTERY DISEASE [None]
  - CORONARY ARTERY OCCLUSION [None]
  - CORONARY ARTERY STENOSIS [None]
  - DEPRESSION [None]
  - DYSPEPSIA [None]
  - DYSPHAGIA [None]
  - DYSPNOEA [None]
  - EMOTIONAL DISTRESS [None]
  - FALL [None]
  - FATIGUE [None]
  - HAEMATOMA [None]
  - HEAD INJURY [None]
  - HEADACHE [None]
  - HEART RATE DECREASED [None]
  - HERPES ZOSTER [None]
  - HYPERCHOLESTEROLAEMIA [None]
  - HYPERTENSION [None]
  - HYPOTENSION [None]
  - INSOMNIA [None]
  - IRRITABLE BOWEL SYNDROME [None]
  - MITRAL VALVE INCOMPETENCE [None]
  - MYOCARDIAL INFARCTION [None]
  - OEDEMA PERIPHERAL [None]
  - OESOPHAGEAL SPASM [None]
  - OLIGURIA [None]
  - PAIN [None]
  - PARAESTHESIA [None]
  - PELVIC PAIN [None]
  - PERICARDIAL EFFUSION [None]
  - PNEUMONIA [None]
  - PROCEDURAL COMPLICATION [None]
  - RASH PRURITIC [None]
  - RESTLESS LEGS SYNDROME [None]
  - RHINITIS ALLERGIC [None]
  - SINUSITIS [None]
  - SOMNOLENCE [None]
  - STRESS [None]
  - SYNCOPE [None]
  - TREMOR [None]
  - UPPER RESPIRATORY TRACT INFECTION [None]
  - VENTRICULAR HYPERTROPHY [None]
